FAERS Safety Report 19076295 (Version 3)
Quarter: 2021Q2

REPORT INFORMATION
  Report Type: Spontaneous
  Country: US (occurrence: US)
  Receive Date: 20210330
  Receipt Date: 20210617
  Transmission Date: 20210717
  Serious: Yes (Other)
  Sender: FDA-Public Use
  Company Number: US-GILEAD-2021-0523062

PATIENT
  Age: 58 Year
  Sex: Male
  Weight: 113.4 kg

DRUGS (28)
  1. VIREAD [Suspect]
     Active Substance: TENOFOVIR DISOPROXIL FUMARATE
     Dosage: UNK
     Route: 048
     Dates: start: 20040101, end: 20060101
  2. ACETAMINOPHEN. [Concomitant]
     Active Substance: ACETAMINOPHEN
  3. VIREAD [Suspect]
     Active Substance: TENOFOVIR DISOPROXIL FUMARATE
     Indication: HIV INFECTION
     Dosage: UNK
     Route: 065
     Dates: start: 19940701
  4. TRUVADA [Suspect]
     Active Substance: EMTRICITABINE\TENOFOVIR DISOPROXIL FUMARATE
     Indication: HIV INFECTION
     Dosage: UNK
     Route: 048
     Dates: start: 20060101, end: 20140501
  5. NORVIR [Concomitant]
     Active Substance: RITONAVIR
  6. REYATAZ [Concomitant]
     Active Substance: ATAZANAVIR SULFATE
  7. BACTRIM [Concomitant]
     Active Substance: SULFAMETHOXAZOLE\TRIMETHOPRIM
  8. PENICILLIN NOS [Concomitant]
     Active Substance: PENICILLIN
  9. COMPLERA [Suspect]
     Active Substance: EMTRICITABINE\RILPIVIRINE HYDROCHLORIDE\TENOFOVIR DISOPROXIL FUMARATE
     Dosage: UNK
     Route: 048
     Dates: start: 20140620, end: 20160430
  10. D4T [Concomitant]
     Active Substance: STAVUDINE
  11. 3TC [Concomitant]
     Active Substance: LAMIVUDINE
  12. ACICLOVIR [Concomitant]
     Active Substance: ACYCLOVIR
  13. ATORVASTATIN [Concomitant]
     Active Substance: ATORVASTATIN
  14. WARFARIN [Concomitant]
     Active Substance: WARFARIN
  15. TRUVADA [Suspect]
     Active Substance: EMTRICITABINE\TENOFOVIR DISOPROXIL FUMARATE
     Dosage: UNK
     Route: 048
     Dates: start: 20090130, end: 20140609
  16. TRUVADA [Suspect]
     Active Substance: EMTRICITABINE\TENOFOVIR DISOPROXIL FUMARATE
     Dosage: UNK
     Route: 048
     Dates: start: 20090130, end: 20140620
  17. TRUVADA [Suspect]
     Active Substance: EMTRICITABINE\TENOFOVIR DISOPROXIL FUMARATE
     Dosage: UNK
     Route: 048
     Dates: start: 20090130, end: 20140709
  18. COMPLERA [Suspect]
     Active Substance: EMTRICITABINE\RILPIVIRINE HYDROCHLORIDE\TENOFOVIR DISOPROXIL FUMARATE
     Dosage: UNK
     Route: 048
     Dates: start: 20160201, end: 20171101
  19. TIVICAY [Concomitant]
     Active Substance: DOLUTEGRAVIR SODIUM
  20. ASPIRIN [ACETYLSALICYLIC ACID] [Concomitant]
     Active Substance: ASPIRIN
  21. VANCOMYCIN [Concomitant]
     Active Substance: VANCOMYCIN
  22. COMPLERA [Suspect]
     Active Substance: EMTRICITABINE\RILPIVIRINE HYDROCHLORIDE\TENOFOVIR DISOPROXIL FUMARATE
     Indication: HIV INFECTION
     Dosage: UNK
     Route: 048
     Dates: start: 20140620, end: 20161019
  23. COMPLERA [Suspect]
     Active Substance: EMTRICITABINE\RILPIVIRINE HYDROCHLORIDE\TENOFOVIR DISOPROXIL FUMARATE
     Dosage: UNK
     Route: 048
     Dates: start: 20140709, end: 20160430
  24. CRIXIVAN [Concomitant]
     Active Substance: INDINAVIR SULFATE
  25. FLOMAX [Concomitant]
     Active Substance: TAMSULOSIN HYDROCHLORIDE
  26. ODEFSEY [Concomitant]
     Active Substance: EMTRICITABINE\RILPIVIRINE HYDROCHLORIDE\TENOFOVIR ALAFENAMIDE FUMARATE
  27. AMOXICILLIN. [Concomitant]
     Active Substance: AMOXICILLIN
  28. AMPICILLIN [Concomitant]
     Active Substance: AMPICILLIN

REACTIONS (6)
  - Osteonecrosis [Not Recovered/Not Resolved]
  - Bone loss [Unknown]
  - Pain [Unknown]
  - Exercise tolerance decreased [Not Recovered/Not Resolved]
  - Emotional distress [Unknown]
  - Bone density decreased [Unknown]

NARRATIVE: CASE EVENT DATE: 20171024
